FAERS Safety Report 18856201 (Version 1)
Quarter: 2021Q1

REPORT INFORMATION
  Report Type: Spontaneous
  Country: US (occurrence: US)
  Receive Date: 20210206
  Receipt Date: 20210206
  Transmission Date: 20210420
  Serious: No
  Sender: FDA-Public Use
  Company Number: US-009507513-2102USA002076

PATIENT
  Age: 87 Year
  Sex: Female

DRUGS (1)
  1. ALBUTEROL SULFATE. [Suspect]
     Active Substance: ALBUTEROL SULFATE
     Indication: DYSPNOEA
     Dosage: 2 PUFFS EVERY 6 HOUR
     Dates: start: 20210202

REACTIONS (4)
  - Poor quality device used [Unknown]
  - Wheezing [Unknown]
  - Device malfunction [Unknown]
  - Product use complaint [Unknown]

NARRATIVE: CASE EVENT DATE: 20210202
